FAERS Safety Report 6974754-4 (Version None)
Quarter: 2010Q3

REPORT INFORMATION
  Report Type: 
  Country: None (occurrence: None)
  Receive Date: 20100909
  Receipt Date: 20081218
  Transmission Date: 20110219
  Serious: No
  Sender: FDA-Public Use
  Company Number: US-WYE-H07365008

PATIENT
  Age: 60 Year
  Sex: Female
  Weight: 75.36 kg

DRUGS (4)
  1. PRISTIQ [Suspect]
     Indication: DEPRESSION
     Route: 048
     Dates: start: 20081217, end: 20081217
  2. LISINOPRIL [Concomitant]
  3. FLAXSEED [Concomitant]
  4. OMNICEF [Concomitant]

REACTIONS (3)
  - ANXIETY [None]
  - DIARRHOEA [None]
  - DIZZINESS [None]
